FAERS Safety Report 5188960-5 (Version None)
Quarter: 2006Q4

REPORT INFORMATION
  Report Type: 
  Country: None (occurrence: None)
  Receive Date: 20061221
  Receipt Date: 20050624
  Transmission Date: 20070319
  Serious: No
  Sender: FDA-Public Use
  Company Number: US-AMGEN-US139994

PATIENT
  Sex: Female

DRUGS (4)
  1. ENBREL [Suspect]
     Indication: PSORIASIS
     Route: 058
     Dates: start: 20050601, end: 20051001
  2. METHOTREXATE [Concomitant]
     Route: 065
  3. DESONIDE [Concomitant]
     Route: 061
  4. CLOBETASOL PROPIONATE [Concomitant]
     Route: 065

REACTIONS (2)
  - HERPES SIMPLEX [None]
  - INJECTION SITE REACTION [None]
